FAERS Safety Report 11939300 (Version 9)
Quarter: 2017Q2

REPORT INFORMATION
  Report Type: Spontaneous
  Country: US (occurrence: US)
  Receive Date: 20160122
  Receipt Date: 20170523
  Transmission Date: 20170829
  Serious: No
  Sender: FDA-Public Use
  Company Number: US-ACTELION PHARMACEUTICALS US, INC.-A-US2016-130076

PATIENT
  Age: 41 Year
  Sex: Male
  Weight: 92.97 kg

DRUGS (5)
  1. COUMADIN [Concomitant]
     Active Substance: WARFARIN SODIUM
  2. VELETRI [Suspect]
     Active Substance: EPOPROSTENOL
     Indication: PULMONARY ARTERIAL HYPERTENSION
     Dosage: 22 NG/KG, PER MIN
     Route: 042
     Dates: start: 20140306
  3. REVATIO [Concomitant]
     Active Substance: SILDENAFIL CITRATE
     Dosage: UNK
  4. SILDENAFIL. [Concomitant]
     Active Substance: SILDENAFIL
  5. VELETRI [Suspect]
     Active Substance: EPOPROSTENOL
     Dosage: 30 NG/KG, PER MIN
     Route: 042

REACTIONS (21)
  - Oral herpes [Unknown]
  - Erythema [Recovering/Resolving]
  - Pyrexia [Unknown]
  - Catheter site pruritus [Unknown]
  - Ear infection [Unknown]
  - Diarrhoea [Unknown]
  - Rash macular [Unknown]
  - Dyspnoea exertional [Unknown]
  - Throat irritation [Unknown]
  - Rash [Recovering/Resolving]
  - Fatigue [Unknown]
  - Irritable bowel syndrome [Unknown]
  - Catheter site erythema [Unknown]
  - Influenza [Unknown]
  - Flushing [Unknown]
  - Hot flush [Recovering/Resolving]
  - Viral infection [Unknown]
  - Palpitations [Unknown]
  - Pain in jaw [Recovering/Resolving]
  - Abnormal faeces [Unknown]
  - Weight decreased [Unknown]

NARRATIVE: CASE EVENT DATE: 201601
